FAERS Safety Report 11240897 (Version 2)
Quarter: 2015Q3

REPORT INFORMATION
  Report Type: Spontaneous
  Country: BR (occurrence: BR)
  Receive Date: 20150706
  Receipt Date: 20150821
  Transmission Date: 20151125
  Serious: Yes (Death)
  Sender: FDA-Public Use
  Company Number: BR-BAYER-2015-365302

PATIENT
  Sex: Female

DRUGS (2)
  1. ADALAT [Suspect]
     Active Substance: NIFEDIPINE
     Route: 064
  2. ADALAT [Suspect]
     Active Substance: NIFEDIPINE
     Route: 064

REACTIONS (3)
  - Foetal exposure during pregnancy [None]
  - Sepsis neonatal [Fatal]
  - Meconium aspiration syndrome [Fatal]

NARRATIVE: CASE EVENT DATE: 20150517
